FAERS Safety Report 7449767-9 (Version None)
Quarter: 2011Q2

REPORT INFORMATION
  Report Type: 
  Country: None (occurrence: None)
  Receive Date: 20110421
  Receipt Date: 20110415
  Transmission Date: 20111010
  Serious: Yes (Death, Hospitalization)
  Sender: FDA-Public Use
  Company Number: 1000018581

PATIENT
  Age: 78 Year
  Sex: Female

DRUGS (6)
  1. PRILOSEC (OMEPRAZOLE) (OMEPRAZOLE) [Concomitant]
  2. CRESTOR [Concomitant]
  3. SYNTHROID (LEVOTHYROXINE SODIUM) (LEVOTHYROXINE SODIUM) [Concomitant]
  4. BYSTOLIC [Suspect]
     Indication: HYPERTENSION
     Dosage: 5 MG (5 MG, 1 IN 1 D), ORAL
     Route: 048
     Dates: start: 20110116, end: 20110119
  5. DIOVAN [Concomitant]
  6. RANEXA (RANOLAZINE) (RANOLAZINE) [Concomitant]

REACTIONS (5)
  - BRADYCARDIA [None]
  - SYNCOPE [None]
  - CARDIAC ARREST [None]
  - DYSPNOEA [None]
  - PULSE ABSENT [None]
